FAERS Safety Report 23758126 (Version 1)
Quarter: 2024Q2

REPORT INFORMATION
  Report Type: Report from Study
  Country: US (occurrence: None)
  Receive Date: 20240418
  Receipt Date: 20240418
  Transmission Date: 20240716
  Serious: Yes (Other)
  Sender: FDA-Public Use
  Company Number: 2024A067966

PATIENT
  Sex: Female
  Weight: 63.5 kg

DRUGS (1)
  1. CALQUENCE [Suspect]
     Active Substance: ACALABRUTINIB
     Indication: Chronic lymphocytic leukaemia
     Route: 048
     Dates: start: 20231127

REACTIONS (9)
  - Fluid retention [Unknown]
  - Product dose omission issue [Unknown]
  - Fall [Unknown]
  - Hypoaesthesia [Unknown]
  - Ligament sprain [Unknown]
  - Hyponatraemia [Unknown]
  - Trigger points [Unknown]
  - Foot deformity [Unknown]
  - Hypersensitivity [Unknown]
